FAERS Safety Report 9406923 (Version 2)
Quarter: 2013Q3

REPORT INFORMATION
  Report Type: Spontaneous
  Country: US (occurrence: US)
  Receive Date: 20130718
  Receipt Date: 20130826
  Transmission Date: 20140515
  Serious: Yes (Other)
  Sender: FDA-Public Use
  Company Number: US-PFIZER INC-2013205541

PATIENT
  Sex: 0

DRUGS (2)
  1. BOSULIF [Suspect]
     Dosage: UNK
  2. HYDROXYUREA [Concomitant]
     Dosage: 2 G, 1X/DAY

REACTIONS (1)
  - Pancreatitis [Unknown]
